FAERS Safety Report 9977999 (Version 2)
Quarter: 2015Q1

REPORT INFORMATION
  Report Type: Report from Study
  Country: PR (occurrence: PR)
  Receive Date: 20140306
  Receipt Date: 20150216
  Transmission Date: 20150721
  Serious: No
  Sender: FDA-Public Use
  Company Number: PR-ABBVIE-13P-131-1165965-00

PATIENT
  Sex: Male
  Weight: 63.56 kg

DRUGS (3)
  1. PENTASA [Concomitant]
     Active Substance: MESALAMINE
     Indication: INFLAMMATORY BOWEL DISEASE
     Route: 048
  2. HUMIRA [Suspect]
     Active Substance: ADALIMUMAB
     Indication: CROHN^S DISEASE
     Route: 058
  3. HUMIRA [Suspect]
     Active Substance: ADALIMUMAB
     Dates: start: 2013, end: 201311

REACTIONS (2)
  - Injection site swelling [Recovered/Resolved with Sequelae]
  - Injection site swelling [Recovered/Resolved]

NARRATIVE: CASE EVENT DATE: 2013
